FAERS Safety Report 10397977 (Version 1)
Quarter: 2014Q3

REPORT INFORMATION
  Report Type: Spontaneous
  Country: FR (occurrence: FR)
  Receive Date: 20140821
  Receipt Date: 20140821
  Transmission Date: 20150326
  Serious: Yes (Life-Threatening, Hospitalization, Other)
  Sender: FDA-Public Use
  Company Number: FR-UCBSA-2014008720

PATIENT
  Age: 53 Year
  Sex: Male

DRUGS (11)
  1. VIMPAT [Suspect]
     Active Substance: LACOSAMIDE
     Indication: EPILEPSY
     Dosage: 200 MG, 2X/DAY (BID)
     Route: 048
     Dates: start: 20140102, end: 20140717
  2. INEXIUM [Concomitant]
     Active Substance: ESOMEPRAZOLE
     Dosage: DOSE UNKNOWN
  3. IMODIUM [Concomitant]
     Active Substance: LOPERAMIDE HYDROCHLORIDE
     Dosage: DOSE UNKNOWN
  4. SOLU-MEDROL [Concomitant]
     Active Substance: METHYLPREDNISOLONE SODIUM SUCCINATE
     Dosage: DOSE UNKNOWN
  5. KEPPRA [Concomitant]
     Active Substance: LEVETIRACETAM
     Dosage: DOSE UNKNOWN
  6. PARACETAMOL [Concomitant]
     Active Substance: ACETAMINOPHEN
     Dosage: DOSE UNKNOWN
  7. KINERET [Concomitant]
     Active Substance: ANAKINRA
     Dosage: DOSE UNKNOWN
  8. CANCIDAS [Concomitant]
     Active Substance: CASPOFUNGIN ACETATE
     Dosage: DOSE UNKNOWN
  9. TIORFAN [Concomitant]
     Active Substance: RACECADOTRIL
     Dosage: DOSE UNKNOWN
  10. LASILIX [Concomitant]
     Active Substance: FUROSEMIDE
     Dosage: DOSE UNKNOWN
  11. URBANYL [Concomitant]
     Active Substance: CLOBAZAM
     Dosage: DOSE UNKNOWN

REACTIONS (4)
  - Sinus arrhythmia [Recovered/Resolved]
  - Drug ineffective [Unknown]
  - Cardiac arrest [Recovered/Resolved]
  - Lung disorder [Unknown]

NARRATIVE: CASE EVENT DATE: 2014
